FAERS Safety Report 11486825 (Version 5)
Quarter: 2016Q1

REPORT INFORMATION
  Report Type: Spontaneous
  Country: US (occurrence: US)
  Receive Date: 20150910
  Receipt Date: 20160205
  Transmission Date: 20160525
  Serious: Yes (Hospitalization)
  Sender: FDA-Public Use
  Company Number: US-PFIZER INC-2015291612

PATIENT
  Age: 78 Year
  Sex: Male
  Weight: 77 kg

DRUGS (18)
  1. NITROSTAT [Concomitant]
     Active Substance: NITROGLYCERIN
     Indication: CHEST PAIN
     Dosage: 0.4 MG, AS NEEDED, SELDOM HAS TO USE IT, USES ON AND OFF
     Dates: start: 201101
  2. LYRICA [Suspect]
     Active Substance: PREGABALIN
     Indication: DIABETIC NEUROPATHY
     Dosage: 300 MG, DAILY (3 DOSAGE OF 100 MG A DAY)
     Dates: start: 201510, end: 201510
  3. ASPIRIN. [Concomitant]
     Active Substance: ASPIRIN
     Indication: CARDIAC DISORDER
     Dosage: 81 MG, 1X/DAY
     Dates: start: 201012
  4. ATORVASTATIN [Concomitant]
     Active Substance: ATORVASTATIN
     Indication: CARDIAC DISORDER
     Dosage: 50 MG, 1X/DAY
     Dates: start: 201401
  5. LISINOPRIL. [Concomitant]
     Active Substance: LISINOPRIL
     Indication: BLOOD PRESSURE ABNORMAL
     Dosage: 5 MG, 1X/DAY
     Dates: start: 201502
  6. CILOSTAZOL. [Suspect]
     Active Substance: CILOSTAZOL
     Indication: DIABETIC NEUROPATHY
     Dosage: 100 MG, DAILY
     Dates: start: 201408, end: 201408
  7. NOVOLIN [Concomitant]
     Active Substance: INSULIN HUMAN
     Indication: DIABETES MELLITUS
     Dosage: 10 UNITS BEFORE EACH MEAL
     Dates: start: 201502
  8. GABAPENTIN. [Suspect]
     Active Substance: GABAPENTIN
     Indication: DIABETIC NEUROPATHY
     Dosage: 100 MG, 1X/DAY, AT BEDTIME
     Dates: start: 20150313
  9. GABAPENTIN. [Suspect]
     Active Substance: GABAPENTIN
     Dosage: 50 MG, 1X/DAY AT BEDTIME
     Dates: start: 20150315, end: 20150315
  10. MECLIZINE [Suspect]
     Active Substance: MECLIZINE HYDROCHLORIDE
     Indication: DIABETIC NEUROPATHY
     Dosage: 12 MG, 2X/DAY
     Dates: start: 201506, end: 201506
  11. ISOSORBIDE. [Concomitant]
     Active Substance: ISOSORBIDE
     Indication: CARDIAC DISORDER
     Dosage: 60 MG, 1X/DAY
     Dates: start: 201412
  12. LEVOTHYROXINE. [Concomitant]
     Active Substance: LEVOTHYROXINE
     Indication: THYROID DISORDER
     Dosage: 25 MG, 1X/DAY
     Dates: start: 201503
  13. AMITRIPTYLINE [Suspect]
     Active Substance: AMITRIPTYLINE
     Dosage: 10 MG, UNK
     Route: 042
     Dates: start: 201304
  14. PRIMIDONE. [Suspect]
     Active Substance: PRIMIDONE
     Indication: DIABETIC NEUROPATHY
     Dosage: 50 MG, 1X/DAY (AT B/TIME)
     Dates: start: 201508, end: 201508
  15. NOVOLOG [Concomitant]
     Active Substance: INSULIN ASPART
     Dosage: UNK
     Dates: start: 201502
  16. GABAPENTIN. [Suspect]
     Active Substance: GABAPENTIN
     Dosage: 300 MG, 3X/DAY
     Dates: start: 201503, end: 201503
  17. MULTIVITAMIN [Concomitant]
     Active Substance: VITAMINS
     Dosage: 2 DF, 1X/DAY
     Dates: start: 201401
  18. TOUJEO [Concomitant]
     Active Substance: INSULIN GLARGINE
     Indication: DIABETES MELLITUS
     Dosage: 10 TO 12 UNITS AT BEDTIME 1X/DAY
     Dates: start: 201503

REACTIONS (6)
  - Vision blurred [Recovered/Resolved]
  - Product use issue [Not Recovered/Not Resolved]
  - Fluid retention [Unknown]
  - Feeling abnormal [Recovered/Resolved]
  - Dizziness [Recovered/Resolved]
  - Bradyphrenia [Recovered/Resolved]

NARRATIVE: CASE EVENT DATE: 20150313
